FAERS Safety Report 5653405-5 (Version None)
Quarter: 2008Q1

REPORT INFORMATION
  Report Type: 
  Country: None (occurrence: None)
  Receive Date: 20080306
  Receipt Date: 20080229
  Transmission Date: 20080703
  Serious: Yes (Other)
  Sender: FDA-Public Use
  Company Number: A0712737A

PATIENT
  Age: 74 Year
  Sex: Male

DRUGS (4)
  1. COREG [Suspect]
     Indication: HEART RATE DECREASED
     Dosage: 6.25MG PER DAY
     Route: 048
     Dates: start: 20040101
  2. ASPIRIN [Concomitant]
  3. COUMADIN [Concomitant]
  4. ZOCOR [Concomitant]

REACTIONS (6)
  - CONFUSIONAL STATE [None]
  - DIZZINESS [None]
  - DRUG ADMINISTRATION ERROR [None]
  - FATIGUE [None]
  - HEART RATE DECREASED [None]
  - SYNCOPE [None]
